FAERS Safety Report 4861297-7 (Version None)
Quarter: 2005Q4

REPORT INFORMATION
  Report Type: 
  Country: None (occurrence: None)
  Receive Date: 20051128
  Receipt Date: 20050812
  Transmission Date: 20060501
  Serious: No
  Sender: FDA-Public Use
  Company Number: 214335

PATIENT
  Sex: Female

DRUGS (3)
  1. RAPTIVA [Suspect]
     Indication: PSORIASIS
     Dosage: 0.9 ML ; 0.7 ML; 0.9 ML
     Dates: start: 20050101, end: 20050501
  2. RAPTIVA [Suspect]
     Indication: PSORIASIS
     Dosage: 0.9 ML ; 0.7 ML; 0.9 ML
     Dates: start: 20050501, end: 20050601
  3. RAPTIVA [Suspect]
     Indication: PSORIASIS
     Dosage: 0.9 ML ; 0.7 ML; 0.9 ML
     Dates: start: 20050601

REACTIONS (1)
  - THROMBOCYTOPENIA [None]
